FAERS Safety Report 18601236 (Version 2)
Quarter: 2020Q4

REPORT INFORMATION
  Report Type: Report from Study
  Country: CA (occurrence: CA)
  Receive Date: 20201210
  Receipt Date: 20201216
  Transmission Date: 20210114
  Serious: Yes (Other)
  Sender: FDA-Public Use
  Company Number: CA-JNJFOC-20201104148

PATIENT
  Age: 61 Year
  Sex: Male
  Weight: 81 kg

DRUGS (2)
  1. REMICADE [Suspect]
     Active Substance: INFLIXIMAB
     Indication: CROHN^S DISEASE
     Dosage: DOSE INCREASED.
     Route: 042
     Dates: start: 20200921
  2. REMICADE [Suspect]
     Active Substance: INFLIXIMAB
     Dosage: ON 10-DEC-2020, THE PATIENT RECEIVED 04TH INFLIXIMAB INFUSION FOR DOSE OF 800 MG.
     Route: 042

REACTIONS (4)
  - Stoma creation [Unknown]
  - Suspected COVID-19 [Not Recovered/Not Resolved]
  - Crohn^s disease [Not Recovered/Not Resolved]
  - Dizziness [Unknown]

NARRATIVE: CASE EVENT DATE: 20201026
